FAERS Safety Report 23020609 (Version 1)
Quarter: 2023Q4

REPORT INFORMATION
  Report Type: Other
  Country: None (occurrence: US)
  Receive Date: 20231003
  Receipt Date: 20231003
  Transmission Date: 20240109
  Serious: Yes (Hospitalization)
  Sender: FDA-Public Use
  Company Number: US-Marksans Pharma Limited-2146578

PATIENT
  Age: 62 Year
  Sex: Female

DRUGS (1)
  1. GABAPENTIN [Suspect]
     Active Substance: GABAPENTIN
     Indication: Myalgia
     Route: 065

REACTIONS (4)
  - Myoclonus [Recovered/Resolved]
  - Mental status changes [Recovering/Resolving]
  - Somnolence [Unknown]
  - Off label use [Unknown]
